FAERS Safety Report 8515289-7 (Version None)
Quarter: 2012Q3

REPORT INFORMATION
  Report Type: 
  Country: None (occurrence: None)
  Receive Date: 20120717
  Receipt Date: 20120419
  Transmission Date: 20120928
  Serious: Yes (Other)
  Sender: FDA-Public Use
  Company Number: US-ASTRAZENECA-2012SE48933

PATIENT

DRUGS (3)
  1. AROMATASE INHIBITOR [Concomitant]
  2. FULVESTRANT [Suspect]
     Indication: CHEMOTHERAPY
     Route: 030
  3. SORAFENIB [Suspect]
     Indication: CHEMOTHERAPY

REACTIONS (1)
  - PALMAR-PLANTAR ERYTHRODYSAESTHESIA SYNDROME [None]
